FAERS Safety Report 15896203 (Version 1)
Quarter: 2019Q1

REPORT INFORMATION
  Report Type: Spontaneous
  Country: US (occurrence: US)
  Receive Date: 20190108
  Receipt Date: 20190108
  Transmission Date: 20190417
  Serious: Yes (Hospitalization)
  Sender: FDA-Public Use
  Company Number: None

PATIENT
  Age: 44 Year
  Sex: Male
  Weight: 163.75 kg

DRUGS (1)
  1. VANCOMYCIN 5GM VIAL [Suspect]
     Active Substance: VANCOMYCIN
     Indication: MEDICAL DEVICE SITE JOINT INFECTION
     Route: 042
     Dates: start: 20181214, end: 20181231

REACTIONS (4)
  - Stevens-Johnson syndrome [None]
  - Pain [None]
  - Rash [None]
  - Mucosal inflammation [None]

NARRATIVE: CASE EVENT DATE: 20181231
